FAERS Safety Report 13058250 (Version 1)
Quarter: 2016Q4

REPORT INFORMATION
  Report Type: Report from Study
  Country: CA (occurrence: CA)
  Receive Date: 20161223
  Receipt Date: 20161223
  Transmission Date: 20170207
  Serious: Yes (Death, Other)
  Sender: FDA-Public Use
  Company Number: CA-JNJFOC-20160817059

PATIENT
  Age: 87 Year
  Sex: Male

DRUGS (2)
  1. ZYTIGA [Suspect]
     Active Substance: ABIRATERONE ACETATE
     Indication: PROSTATE CANCER METASTATIC
     Route: 048
     Dates: start: 201607, end: 2016
  2. PREDNISONE. [Concomitant]
     Active Substance: PREDNISONE
     Indication: PROSTATE CANCER METASTATIC
     Route: 048
     Dates: start: 201607, end: 2016

REACTIONS (5)
  - Death [Fatal]
  - Angina pectoris [Recovered/Resolved]
  - Treatment noncompliance [Not Recovered/Not Resolved]
  - Laboratory test abnormal [Not Recovered/Not Resolved]
  - Oedema peripheral [Not Recovered/Not Resolved]

NARRATIVE: CASE EVENT DATE: 20160823
